FAERS Safety Report 7145390-4 (Version None)
Quarter: 2010Q4

REPORT INFORMATION
  Report Type: 
  Country: None (occurrence: None)
  Receive Date: 20101208
  Receipt Date: 20101202
  Transmission Date: 20110411
  Serious: Yes (Hospitalization, Other)
  Sender: FDA-Public Use
  Company Number: AU-AMGEN-KDL412094

PATIENT

DRUGS (12)
  1. NEULASTA [Suspect]
     Indication: CHEMOTHERAPY
     Dosage: 6 MG, QCYCLE
     Route: 058
     Dates: start: 20090210
  2. CORTICOSTEROIDS [Suspect]
  3. PREDNISOLONE [Suspect]
  4. GLICLAZIDE [Concomitant]
  5. CYCLOPHOSPHAMIDE [Concomitant]
     Dosage: UNK UNK, UNK
     Dates: start: 20090209
  6. DOXORUBICIN HYDROCHLORIDE [Concomitant]
     Dosage: UNK UNK, UNK
     Dates: start: 20090209
  7. VINCRISTINE SULFATE [Concomitant]
     Dosage: UNK UNK, UNK
     Dates: start: 20090209
  8. PREDNISONE [Concomitant]
     Dosage: UNK UNK, UNK
     Dates: start: 20090209
  9. RITUXIMAB [Concomitant]
     Dosage: UNK UNK, UNK
     Dates: start: 20090209
  10. ATORVASTATIN CALCIUM [Concomitant]
  11. DEXAMETHASONE [Concomitant]
     Dosage: 100 MG, UNK
     Dates: start: 20090209, end: 20090213
  12. PARACETAMOL [Concomitant]

REACTIONS (8)
  - ANXIETY [None]
  - BACK PAIN [None]
  - BONE PAIN [None]
  - INSOMNIA [None]
  - MENTAL DISORDER [None]
  - PAIN [None]
  - PANIC ATTACK [None]
  - PSYCHOTIC DISORDER [None]
